FAERS Safety Report 10924534 (Version 2)
Quarter: 2015Q2

REPORT INFORMATION
  Report Type: Spontaneous
  Country: US (occurrence: US)
  Receive Date: 20150318
  Receipt Date: 20150524
  Transmission Date: 20150821
  Serious: No
  Sender: FDA-Public Use
  Company Number: US-JNJFOC-20141019699

PATIENT
  Age: 95 Year
  Sex: Female
  Weight: 39.92 kg

DRUGS (4)
  1. NIZORAL A-D [Suspect]
     Active Substance: KETOCONAZOLE
     Route: 061
  2. PLAVIX [Concomitant]
     Active Substance: CLOPIDOGREL BISULFATE
     Indication: PRODUCT USED FOR UNKNOWN INDICATION
     Route: 065
  3. LISINOPRIL. [Concomitant]
     Active Substance: LISINOPRIL
     Indication: PRODUCT USED FOR UNKNOWN INDICATION
     Route: 065
  4. NIZORAL A-D [Suspect]
     Active Substance: KETOCONAZOLE
     Indication: PRODUCT USED FOR UNKNOWN INDICATION
     Dosage: EVERY OTHER WEEK
     Route: 061

REACTIONS (1)
  - Alopecia [Not Recovered/Not Resolved]
